FAERS Safety Report 15294783 (Version 2)
Quarter: 2018Q4

REPORT INFORMATION
  Report Type: Spontaneous
  Country: US (occurrence: US)
  Receive Date: 20180820
  Receipt Date: 20180912
  Transmission Date: 20190204
  Serious: Yes (Other)
  Sender: FDA-Public Use
  Company Number: US-PROCTER_AND_GAMBLE-GS18092232

PATIENT
  Age: 66 Year
  Sex: Female
  Weight: 77.55 kg

DRUGS (1)
  1. CREST 3D WHITE RADIANT MINT [Suspect]
     Active Substance: SODIUM FLUORIDE
     Dosage: COVER BRISTLES, 1 ONLY; 1 TIME
     Route: 002
     Dates: start: 20180809, end: 20180809

REACTIONS (10)
  - Dysphagia [Recovered/Resolved]
  - Oral pain [Recovering/Resolving]
  - Throat tightness [Recovering/Resolving]
  - Paraesthesia oral [Unknown]
  - Aphasia [Recovering/Resolving]
  - Adverse drug reaction [Unknown]
  - Dyspnoea [Recovering/Resolving]
  - Hypersensitivity [Recovering/Resolving]
  - Swollen tongue [Recovered/Resolved]
  - Glossodynia [Recovering/Resolving]

NARRATIVE: CASE EVENT DATE: 20180809
